FAERS Safety Report 23415935 (Version 3)
Quarter: 2024Q1

REPORT INFORMATION
  Report Type: Spontaneous
  Country: US (occurrence: US)
  Receive Date: 20240118
  Receipt Date: 20240206
  Transmission Date: 20240409
  Serious: No
  Sender: FDA-Public Use
  Company Number: US-LEO Pharma-366832

PATIENT
  Sex: Male

DRUGS (1)
  1. ADBRY [Suspect]
     Active Substance: TRALOKINUMAB-LDRM
     Indication: Dermatitis atopic
     Dosage: STARTED OCTOBER 2023. LAST INJECTION WAS ON 12-JAN-2024 OF NEW BOX

REACTIONS (8)
  - Expired product administered [Unknown]
  - Arthralgia [Recovering/Resolving]
  - Pain [Recovering/Resolving]
  - Dermatitis atopic [Recovering/Resolving]
  - Inflammation [Recovering/Resolving]
  - Syringe issue [Unknown]
  - Incorrect dose administered [Unknown]
  - Pain [Recovering/Resolving]
